FAERS Safety Report 19366374 (Version 1)
Quarter: 2021Q2

REPORT INFORMATION
  Report Type: Spontaneous
  Country: US (occurrence: US)
  Receive Date: 20210602
  Receipt Date: 20210602
  Transmission Date: 20210717
  Serious: Yes (Other)
  Sender: FDA-Public Use
  Company Number: US-NOVOPROD-801932

PATIENT
  Sex: Male

DRUGS (4)
  1. NOVOLOG [Suspect]
     Active Substance: INSULIN ASPART
     Dosage: DOSE INCREASED
     Route: 058
  2. NOVOLOG [Suspect]
     Active Substance: INSULIN ASPART
     Indication: PRODUCT USED FOR UNKNOWN INDICATION
     Dosage: QID
     Route: 058
  3. TRESIBA [Suspect]
     Active Substance: INSULIN DEGLUDEC
     Indication: PRODUCT USED FOR UNKNOWN INDICATION
     Dosage: 80 IU, BID
     Route: 058
  4. NOVOLOG [Suspect]
     Active Substance: INSULIN ASPART
     Dosage: 3 OR 4 TIMES A DAY AT 20 UNITS EACH
     Route: 058

REACTIONS (6)
  - Hepatitis [Not Recovered/Not Resolved]
  - Blood glucose increased [Not Recovered/Not Resolved]
  - Gastritis [Unknown]
  - Constipation [Unknown]
  - Gastrointestinal inflammation [Unknown]
  - Drug ineffective [Not Recovered/Not Resolved]
